FAERS Safety Report 7273572-X (Version None)
Quarter: 2011Q1

REPORT INFORMATION
  Report Type: 
  Country: None (occurrence: None)
  Receive Date: 20110203
  Receipt Date: 20110125
  Transmission Date: 20110831
  Serious: Yes (Other)
  Sender: FDA-Public Use
  Company Number: JP-JNJFOC-20101209215

PATIENT
  Sex: Female
  Weight: 62 kg

DRUGS (7)
  1. BIOFERMIN [Concomitant]
     Indication: CROHN'S DISEASE
     Route: 048
  2. PENTASA [Concomitant]
     Indication: CROHN'S DISEASE
     Route: 048
  3. SOLU-CORTEF [Concomitant]
     Indication: PREMEDICATION
     Route: 042
  4. REMICADE [Suspect]
     Indication: CROHN'S DISEASE
     Route: 042
  5. REMICADE [Suspect]
     Route: 042
  6. TALION [Concomitant]
     Indication: PREMEDICATION
  7. TALION [Concomitant]
     Indication: CROHN'S DISEASE

REACTIONS (3)
  - INFUSION RELATED REACTION [None]
  - CYCLOTHYMIC DISORDER [None]
  - PYREXIA [None]
